FAERS Safety Report 6551813-1 (Version None)
Quarter: 2010Q1

REPORT INFORMATION
  Report Type: 
  Country: None (occurrence: None)
  Receive Date: 20100126
  Receipt Date: 20100115
  Transmission Date: 20100710
  Serious: Yes (Death, Hospitalization)
  Sender: FDA-Public Use
  Company Number: US-JNJFOC-20100106805

PATIENT
  Age: 48 Year
  Sex: Female

DRUGS (14)
  1. ACETAMINOPHEN [Suspect]
     Route: 048
  2. ACETAMINOPHEN [Suspect]
     Indication: PAIN
     Dosage: 5200 TO 6500 MG OR MORE DAILY; STOPPED APPROX. 5 DAYS PRIOR TO ADMISSION
     Route: 048
  3. FENTANYL [Concomitant]
  4. OXYCODONE [Concomitant]
  5. NAPROXEN [Concomitant]
  6. ALPRAZOLAM [Concomitant]
  7. CLONAZEPAM [Concomitant]
  8. QUETIAPINE [Concomitant]
  9. OLMESARTAN [Concomitant]
  10. GABAPENTIN [Concomitant]
  11. FLUOXETINE [Concomitant]
  12. ESCITALOPRAM [Concomitant]
  13. CYCLOBENZAPRINE [Concomitant]
  14. BISMUTH SUBSALICYLATE IN OIL INJ [Concomitant]

REACTIONS (4)
  - HEPATIC NECROSIS [None]
  - INTENTIONAL DRUG MISUSE [None]
  - INTENTIONAL OVERDOSE [None]
  - RENAL FAILURE [None]
